FAERS Safety Report 6228167-3 (Version None)
Quarter: 2009Q2

REPORT INFORMATION
  Report Type: 
  Country: None (occurrence: None)
  Receive Date: 20090612
  Receipt Date: 20090609
  Transmission Date: 20091009
  Serious: Yes (Other)
  Sender: FDA-Public Use
  Company Number: PL-BRISTOL-MYERS SQUIBB COMPANY-14646368

PATIENT
  Age: 75 Year
  Sex: Male

DRUGS (4)
  1. CISPLATIN [Suspect]
     Indication: CHEMOTHERAPY
  2. EPIRUBICIN [Suspect]
     Indication: CHEMOTHERAPY
  3. FLUOROURACIL [Suspect]
     Indication: CHEMOTHERAPY
  4. LEUCOVORIN CALCIUM [Suspect]
     Indication: CHEMOTHERAPY

REACTIONS (1)
  - ATRIAL FIBRILLATION [None]
